FAERS Safety Report 4636565-4 (Version None)
Quarter: 2005Q2

REPORT INFORMATION
  Report Type: 
  Country: None (occurrence: None)
  Receive Date: 20050415
  Receipt Date: 20050408
  Transmission Date: 20051028
  Serious: Yes (Hospitalization, Other)
  Sender: FDA-Public Use
  Company Number: PHBS2005AU05101

PATIENT
  Age: 32 Year
  Sex: Male

DRUGS (12)
  1. PREDNISOLONE [Concomitant]
     Dosage: 25 MG/D
  2. PREDNISOLONE [Concomitant]
     Dosage: 50 MG/D
     Route: 065
  3. PREDNISOLONE [Concomitant]
     Dosage: 0.5 MG/KG/D
     Route: 065
  4. METHYLPREDNISOLONE [Concomitant]
     Dosage: 2 MG/KG/D
     Route: 065
  5. ATG [Concomitant]
  6. CYCLOSPORINE [Suspect]
     Indication: STEM CELL TRANSPLANT
     Route: 065
  7. CYCLOSPORINE [Suspect]
     Dosage: UNK, UNK
     Route: 065
  8. METHOTREXATE [Concomitant]
     Indication: STEM CELL TRANSPLANT
  9. BUSULPHAN [Concomitant]
     Indication: STEM CELL TRANSPLANT
  10. CYCLOPHOSPHAMIDE [Concomitant]
     Indication: STEM CELL TRANSPLANT
  11. PERINDOPRIL [Concomitant]
  12. ATORVASTATIN CALCIUM [Concomitant]

REACTIONS (14)
  - ASPERGILLOSIS [None]
  - BRONCHIAL FISTULA [None]
  - DEPRESSION [None]
  - DYSLIPIDAEMIA [None]
  - EMPYEMA [None]
  - GLOMERULONEPHRITIS MEMBRANOUS [None]
  - GRAFT VERSUS HOST DISEASE [None]
  - HYPOALBUMINAEMIA [None]
  - LOWER RESPIRATORY TRACT INFECTION [None]
  - LUNG LOBECTOMY [None]
  - NEPHROTIC SYNDROME [None]
  - PNEUMONIA BACTERIAL [None]
  - PROTEINURIA [None]
  - SCLERODERMA [None]
